FAERS Safety Report 24029451 (Version 2)
Quarter: 2024Q4

REPORT INFORMATION
  Report Type: Spontaneous
  Country: GB (occurrence: GB)
  Receive Date: 20240628
  Receipt Date: 20241211
  Transmission Date: 20250115
  Serious: Yes (Other)
  Sender: TORRENT PHARMA INC.
  Company Number: None

PATIENT
  Age: 45 Year
  Sex: Male
  Weight: 83 kg

DRUGS (1)
  1. SILDENAFIL [Suspect]
     Active Substance: SILDENAFIL
     Indication: Erectile dysfunction
     Dosage: PRN (AS THE THING IS NEEDED)
     Route: 065

REACTIONS (6)
  - Gastric haemorrhage [Recovered/Resolved]
  - Vasodilation procedure [Recovered/Resolved]
  - Impaired gastric emptying [Recovered/Resolved]
  - Haemoglobin decreased [Recovered/Resolved]
  - Gastritis [Recovered/Resolved]
  - Faeces discoloured [Recovered/Resolved]

NARRATIVE: CASE EVENT DATE: 20230905
